FAERS Safety Report 9300936 (Version 3)
Quarter: 2017Q2

REPORT INFORMATION
  Report Type: Report from Study
  Country: IS (occurrence: IS)
  Receive Date: 20130521
  Receipt Date: 20170517
  Transmission Date: 20170830
  Serious: Yes (Death, Other)
  Sender: FDA-Public Use
  Company Number: IS-PFIZER INC-2013147934

PATIENT
  Age: 82 Year

DRUGS (8)
  1. FLUCONAZOLE. [Suspect]
     Active Substance: FLUCONAZOLE
     Indication: HELICOBACTER INFECTION
     Dosage: UNK
  2. RABEPRAZOL [Suspect]
     Active Substance: RABEPRAZOLE
     Indication: OESOPHAGEAL CANDIDIASIS
  3. CLARITHROMYCIN. [Suspect]
     Active Substance: CLARITHROMYCIN
     Indication: HELICOBACTER INFECTION
     Dosage: UNK
  4. AMOXICILLIN. [Suspect]
     Active Substance: AMOXICILLIN
     Indication: OESOPHAGEAL CANDIDIASIS
  5. CLARITHROMYCIN. [Suspect]
     Active Substance: CLARITHROMYCIN
     Indication: OESOPHAGEAL CANDIDIASIS
  6. AMOXICILLIN. [Suspect]
     Active Substance: AMOXICILLIN
     Indication: HELICOBACTER INFECTION
     Dosage: UNK
  7. FLUCONAZOLE. [Suspect]
     Active Substance: FLUCONAZOLE
     Indication: OESOPHAGEAL CANDIDIASIS
  8. RABEPRAZOL [Suspect]
     Active Substance: RABEPRAZOLE
     Indication: HELICOBACTER INFECTION
     Dosage: UNK

REACTIONS (5)
  - Drug-induced liver injury [Fatal]
  - Renal failure [Fatal]
  - Hepatotoxicity [Fatal]
  - Cardiac failure chronic [Fatal]
  - Jaundice [Fatal]
